FAERS Safety Report 18544560 (Version 1)
Quarter: 2020Q4

REPORT INFORMATION
  Report Type: Spontaneous
  Country: US (occurrence: US)
  Receive Date: 20201125
  Receipt Date: 20201125
  Transmission Date: 20210114
  Serious: Yes (Hospitalization)
  Sender: FDA-Public Use
  Company Number: US-SUN PHARMACEUTICAL INDUSTRIES LTD-2020R1-268822

PATIENT
  Age: 71 Year
  Sex: Male

DRUGS (1)
  1. FERROUS SULFATE. [Suspect]
     Active Substance: FERROUS SULFATE
     Indication: IRON DEFICIENCY ANAEMIA
     Dosage: 325 MILLIGRAM, BID
     Route: 048

REACTIONS (3)
  - Haemosiderosis [Recovered/Resolved]
  - Gastritis [Recovered/Resolved]
  - Anaemia [Recovered/Resolved]
